FAERS Safety Report 21850962 (Version 1)
Quarter: 2023Q1

REPORT INFORMATION
  Report Type: Spontaneous
  Country: US (occurrence: US)
  Receive Date: 20230111
  Receipt Date: 20230111
  Transmission Date: 20230418
  Serious: Yes (Other)
  Sender: FDA-Public Use
  Company Number: US-SUN PHARMACEUTICAL INDUSTRIES LTD-2022R1-372531

PATIENT
  Age: 54 Year
  Sex: Male

DRUGS (4)
  1. DEXAMETHASONE [Suspect]
     Active Substance: DEXAMETHASONE
     Indication: Dyspnoea
     Dosage: UNK
     Route: 065
  2. DEXAMETHASONE [Suspect]
     Active Substance: DEXAMETHASONE
     Indication: Hypoxia
  3. APIXABAN [Suspect]
     Active Substance: APIXABAN
     Indication: Hypoxia
     Dosage: 2.5 MILLIGRAM, BID
     Route: 065
  4. APIXABAN [Suspect]
     Active Substance: APIXABAN
     Indication: Dyspnoea

REACTIONS (1)
  - Therapy non-responder [Unknown]
